FAERS Safety Report 15012822 (Version 1)
Quarter: 2018Q2

REPORT INFORMATION
  Report Type: Spontaneous
  Country: GB (occurrence: GB)
  Receive Date: 20180614
  Receipt Date: 20180614
  Transmission Date: 20180711
  Serious: Yes (Other)
  Sender: FDA-Public Use
  Company Number: PHHY2018GB021710

PATIENT
  Age: 93 Year
  Sex: Male
  Weight: 58 kg

DRUGS (8)
  1. WARFARIN SODIUM. [Concomitant]
     Active Substance: WARFARIN SODIUM
     Indication: PRODUCT USED FOR UNKNOWN INDICATION
     Dosage: TO BE TAKEN AS DIRECTED FOLLOWING YOUR BLOOD TE...
     Route: 065
  2. IPRATROPIUM BROMIDE. [Concomitant]
     Active Substance: IPRATROPIUM BROMIDE
     Indication: PRODUCT USED FOR UNKNOWN INDICATION
     Dosage: 1 PUFF FOUR TIMES A DAY
     Route: 065
     Dates: start: 20170308
  3. AMOXICILLIN. [Suspect]
     Active Substance: AMOXICILLIN
     Indication: PRODUCT USED FOR UNKNOWN INDICATION
     Dosage: UNK
     Route: 065
  4. SALBUTAMOL [Concomitant]
     Active Substance: ALBUTEROL
     Indication: PRODUCT USED FOR UNKNOWN INDICATION
     Dosage: INHALE 1-2 PUFFS UP TO FOUR TIMES A DAY
     Route: 055
     Dates: start: 20170308
  5. HYLO TEAR [Concomitant]
     Indication: PRODUCT USED FOR UNKNOWN INDICATION
     Dosage: AS DIRECTED
     Route: 065
     Dates: start: 20170308
  6. HYLO-FORTE [Concomitant]
     Active Substance: HYALURONATE SODIUM
     Indication: PRODUCT USED FOR UNKNOWN INDICATION
     Route: 065
     Dates: start: 20170308
  7. HYLO TEAR [Concomitant]
     Dosage: AS DIRECTED
     Route: 065
     Dates: start: 20180202
  8. TAFLUPROST [Concomitant]
     Active Substance: TAFLUPROST
     Indication: GLAUCOMA
     Dosage: AT NIGHT TO BOTH EYES
     Route: 065
     Dates: start: 20170308

REACTIONS (2)
  - Throat irritation [Recovering/Resolving]
  - Throat tightness [Recovering/Resolving]

NARRATIVE: CASE EVENT DATE: 20180316
